FAERS Safety Report 12428767 (Version 1)
Quarter: 2016Q2

REPORT INFORMATION
  Report Type: Spontaneous
  Country: US (occurrence: US)
  Receive Date: 20160602
  Receipt Date: 20160602
  Transmission Date: 20160815
  Serious: Yes (Other)
  Sender: FDA-Public Use
  Company Number: US-SANOFI-AVENTIS-2013SA000515

PATIENT
  Age: 48 Year
  Sex: Male

DRUGS (2)
  1. CAPZASIN HP ARTHRITIS PAIN RELIEF [Suspect]
     Active Substance: CAPSAICIN
     Indication: MYALGIA
     Route: 065
     Dates: start: 20121222, end: 20121222
  2. CAPZASIN HP ARTHRITIS PAIN RELIEF [Suspect]
     Active Substance: CAPSAICIN
     Indication: MYALGIA
     Route: 065
     Dates: start: 20121222, end: 20121222

REACTIONS (4)
  - Chemical burn of skin [Unknown]
  - Insomnia [Unknown]
  - Injury [Unknown]
  - Erythema [Unknown]

NARRATIVE: CASE EVENT DATE: 20121222
